FAERS Safety Report 4745833-7 (Version None)
Quarter: 2005Q3

REPORT INFORMATION
  Report Type: 
  Country: None (occurrence: None)
  Receive Date: 20050816
  Receipt Date: 20050725
  Transmission Date: 20060218
  Serious: Yes (Other)
  Sender: FDA-Public Use
  Company Number: CH-JNJFOC-20050705316

PATIENT
  Sex: Male
  Weight: 120 kg

DRUGS (7)
  1. REMICADE [Suspect]
     Dosage: 5MG/KG
     Route: 042
  2. REMICADE [Suspect]
     Indication: PSORIASIS
     Dosage: 4 INFUSIONS
     Route: 042
  3. SALAZOPYRIN [Concomitant]
     Indication: PSORIATIC ARTHROPATHY
     Route: 048
  4. OMEPRAZOLE [Concomitant]
     Route: 048
  5. CELEBREX [Concomitant]
     Indication: PSORIATIC ARTHROPATHY
     Route: 048
  6. FOSAMAX [Concomitant]
     Indication: OSTEOPOROSIS
     Route: 048
  7. XENICAL [Concomitant]
     Indication: OBESITY
     Route: 048

REACTIONS (1)
  - PSORIASIS [None]
